FAERS Safety Report 20551110 (Version 1)
Quarter: 2022Q1

REPORT INFORMATION
  Report Type: Report from Study
  Country: IT (occurrence: IT)
  Receive Date: 20220304
  Receipt Date: 20220304
  Transmission Date: 20220423
  Serious: Yes (Other)
  Sender: FDA-Public Use
  Company Number: IT-UNITED THERAPEUTICS-UNT-2022-004469

PATIENT

DRUGS (1)
  1. TREPROSTINIL SODIUM [Suspect]
     Active Substance: TREPROSTINIL SODIUM
     Indication: Pulmonary arterial hypertension
     Dosage: UNK, CONTINUING (AT AN INFUSION RATE OF 0.022 ML/H)
     Route: 058

REACTIONS (2)
  - Syncope [Unknown]
  - Overdose [Unknown]

NARRATIVE: CASE EVENT DATE: 20220224
